FAERS Safety Report 12334878 (Version 4)
Quarter: 2016Q2

REPORT INFORMATION
  Report Type: Spontaneous
  Country: CN (occurrence: CN)
  Receive Date: 20160504
  Receipt Date: 20160616
  Transmission Date: 20160815
  Serious: No
  Sender: FDA-Public Use
  Company Number: CN-009507513-1507CHN014664

PATIENT
  Age: 61 Year
  Sex: Male
  Weight: 57 kg

DRUGS (18)
  1. EMEND [Suspect]
     Active Substance: APREPITANT
     Dosage: 80 MG, DAY 2
     Route: 048
     Dates: start: 20150725, end: 20150725
  2. CISPLATIN. [Concomitant]
     Active Substance: CISPLATIN
     Indication: CHEMOTHERAPY
     Dosage: 120 MG, TREATMENT REGIMEN DDP, TREATMENT CYCLE 3
     Route: 041
     Dates: start: 20150724, end: 20150724
  3. GRANULOCYTE COLONY STIMULATING FACTOR (UNSPECIFIED) [Concomitant]
     Active Substance: FILGRASTIM
     Dosage: TOTAL DAILY DOSE 0.15MG, QD
     Route: 058
     Dates: start: 20150729, end: 20150729
  4. CALCIUM CARBONATE (+) DEXTROSE (+) MAGNESIUM OXIDE (+) POTASSIUM CHLOR [Concomitant]
     Indication: SUPPLEMENTATION THERAPY
     Dosage: STRENGTH: 500ML; FREQUENCY: BID; TOTAL DAILY DOSE: 1500ML/CC
     Route: 041
     Dates: start: 20150723, end: 20150723
  5. TROPISETRON HYDROCHLORIDE [Concomitant]
     Active Substance: TROPISETRON HYDROCHLORIDE
     Indication: VOMITING
     Dosage: 5 MG, QD
     Route: 041
     Dates: start: 20150724, end: 20150724
  6. LANSOPRAZOLE. [Concomitant]
     Active Substance: LANSOPRAZOLE
     Indication: PROPHYLAXIS
     Dosage: 30 MG, QD
     Route: 041
     Dates: start: 20150724, end: 20150727
  7. SHEN QI FU ZHENG ZHU SHE YE [Concomitant]
     Indication: NUTRITIONAL SUPPLEMENTATION
     Dosage: TOTAL DAILY DOSE 250 ML/CC, QD
     Route: 041
     Dates: start: 20150722, end: 20150730
  8. DEXAMETHASONE SODIUM PHOSPHATE. [Concomitant]
     Active Substance: DEXAMETHASONE SODIUM PHOSPHATE
     Indication: PROPHYLAXIS OF NAUSEA AND VOMITING
     Dosage: 12 MG, QD
     Route: 041
     Dates: start: 20150724, end: 20150724
  9. POTASSIUM CHLORIDE. [Concomitant]
     Active Substance: POTASSIUM CHLORIDE
     Indication: MINERAL SUPPLEMENTATION
     Dosage: TOTAL DAILY DOSE 3G, FREQUENCY: TID
     Route: 048
     Dates: start: 20150724, end: 20150727
  10. FUROSEMIDE. [Concomitant]
     Active Substance: FUROSEMIDE
     Indication: DIURETIC THERAPY
     Dosage: TOTAL DAILY DOSE: 40MG, FREQUENCY: BID
     Route: 048
     Dates: start: 20150724, end: 20150727
  11. ASCORBIC ACID. [Concomitant]
     Active Substance: ASCORBIC ACID
     Indication: VITAMIN SUPPLEMENTATION
     Dosage: 2 G, QD
     Route: 041
     Dates: start: 20150723, end: 20150723
  12. ASCORBIC ACID. [Concomitant]
     Active Substance: ASCORBIC ACID
     Dosage: 2 G, QD
     Route: 041
     Dates: start: 20150724, end: 20150727
  13. GRANULOCYTE COLONY STIMULATING FACTOR (UNSPECIFIED) [Concomitant]
     Active Substance: FILGRASTIM
     Indication: WHITE BLOOD CELL COUNT ABNORMAL
     Dosage: TOTAL DAILY DOSE 0.15MG, QD
     Route: 058
     Dates: start: 20150721, end: 20150722
  14. CALCIUM CARBONATE (+) DEXTROSE (+) MAGNESIUM OXIDE (+) POTASSIUM CHLOR [Concomitant]
     Dosage: STRENGTH: 500ML;FREQUENCY: QD;  TOTAL DAILY DOSE: 1500ML/CC
     Route: 041
     Dates: start: 20150724, end: 20150727
  15. DEXAMETHASONE SODIUM PHOSPHATE. [Concomitant]
     Active Substance: DEXAMETHASONE SODIUM PHOSPHATE
     Dosage: 8 MG, QD
     Route: 041
     Dates: start: 20150725, end: 20150727
  16. SODIUM BICARBONATE. [Concomitant]
     Active Substance: SODIUM BICARBONATE
     Indication: URINE ALKALINISATION THERAPY
     Dosage: TOTAL DAILY DOSE: 3G, FREQUENCY; TID
     Route: 048
     Dates: start: 20150724, end: 20150727
  17. EMEND [Suspect]
     Active Substance: APREPITANT
     Indication: PROPHYLAXIS OF NAUSEA AND VOMITING
     Dosage: 125 MG, ONCE, DAY 1
     Route: 048
     Dates: start: 20150724, end: 20150724
  18. EMEND [Suspect]
     Active Substance: APREPITANT
     Dosage: 80 MG, DAY 3
     Route: 048
     Dates: start: 20150726, end: 20150726

REACTIONS (6)
  - Hiccups [Recovered/Resolved]
  - Decreased appetite [Recovered/Resolved]
  - Syncope [Recovered/Resolved]
  - Tinnitus [Recovered/Resolved]
  - Dizziness [Recovered/Resolved]
  - White blood cell count decreased [Recovered/Resolved]

NARRATIVE: CASE EVENT DATE: 20150724
